FAERS Safety Report 23656879 (Version 1)
Quarter: 2024Q1

REPORT INFORMATION
  Report Type: Spontaneous
  Country: IT (occurrence: IT)
  Receive Date: 20240321
  Receipt Date: 20240321
  Transmission Date: 20240409
  Serious: Yes (Other)
  Sender: FDA-Public Use
  Company Number: None

PATIENT
  Age: 59 Year
  Sex: Male

DRUGS (1)
  1. SYMTUZA [Suspect]
     Active Substance: COBICISTAT\DARUNAVIR\EMTRICITABINE\TENOFOVIR ALAFENAMIDE
     Indication: HIV infection
     Dosage: 1 UNITA POSOLOGICA DIE
     Route: 048
     Dates: start: 20231110, end: 20240301

REACTIONS (2)
  - Dyslipidaemia [Unknown]
  - Pruritus [Unknown]

NARRATIVE: CASE EVENT DATE: 20240301
